FAERS Safety Report 10986416 (Version 1)
Quarter: 2015Q1

REPORT INFORMATION
  Report Type: Spontaneous
  Country: US (occurrence: None)
  Receive Date: 20150324
  Receipt Date: 20150324
  Transmission Date: 20150721
  Serious: Yes (Other)
  Sender: FDA-Public Use
  Company Number: 1000069173

PATIENT
  Age: 60 Year
  Sex: Male

DRUGS (14)
  1. FETZIMA [Concomitant]
     Active Substance: LEVOMILNACIPRAN HYDROCHLORIDE
  2. LOSARTAN [Concomitant]
     Active Substance: LOSARTAN
  3. TAMULOSIN [Concomitant]
     Active Substance: TAMSULOSIN
  4. ASPIRIN. [Concomitant]
     Active Substance: ASPIRIN
  5. ALPRAZOLAM. [Concomitant]
     Active Substance: ALPRAZOLAM
  6. VIIBRYD [Suspect]
     Active Substance: VILAZODONE HYDROCHLORIDE
     Indication: DEPRESSION
     Dosage: 10MG (10 MG, 1 IN 1 D), ORAL
     Route: 048
     Dates: start: 201404, end: 201404
  7. LACTULOSE. [Concomitant]
     Active Substance: LACTULOSE
  8. AMITIZA [Concomitant]
     Active Substance: LUBIPROSTONE
  9. TRAZODONE [Concomitant]
     Active Substance: TRAZODONE HYDROCHLORIDE
  10. DIAZEPAM. [Concomitant]
     Active Substance: DIAZEPAM
  11. OXYCODONE [Concomitant]
     Active Substance: OXYCODONE
  12. CARAFATE [Concomitant]
     Active Substance: SUCRALFATE
  13. DEPAKOTE [Concomitant]
     Active Substance: DIVALPROEX SODIUM
  14. PANTOPRAZOLE [Concomitant]
     Active Substance: PANTOPRAZOLE SODIUM

REACTIONS (7)
  - Confusional state [None]
  - Insomnia [None]
  - Anxiety [None]
  - Panic reaction [None]
  - Suicidal ideation [None]
  - Agitation [None]
  - Depression [None]

NARRATIVE: CASE EVENT DATE: 201407
